FAERS Safety Report 5679825-0 (Version None)
Quarter: 2008Q1

REPORT INFORMATION
  Report Type: 
  Country: None (occurrence: None)
  Receive Date: 20080325
  Receipt Date: 20080318
  Transmission Date: 20080703
  Serious: Yes (Other)
  Sender: FDA-Public Use
  Company Number: US-ALLERGAN-0802694US

PATIENT
  Sex: Male

DRUGS (2)
  1. COMBIGAN [Suspect]
     Indication: GLAUCOMA
     Dosage: UNK, BID
     Route: 047
     Dates: start: 20080107, end: 20080203
  2. LUMIGAN [Concomitant]
     Indication: GLAUCOMA
     Dosage: UNK, QAM
     Route: 047
     Dates: end: 20080303

REACTIONS (3)
  - CONJUNCTIVAL HYPERAEMIA [None]
  - ENTROPION [None]
  - ULCERATIVE KERATITIS [None]
